FAERS Safety Report 5267549-3 (Version None)
Quarter: 2007Q1

REPORT INFORMATION
  Report Type: 
  Country: None (occurrence: None)
  Receive Date: 20061213
  Receipt Date: 20050601
  Transmission Date: 20070707
  Serious: Yes (Death)
  Sender: FDA-Public Use
  Company Number: 2005UW05916

PATIENT
  Age: 75 Year
  Sex: Male

DRUGS (3)
  1. IRESSA [Suspect]
     Indication: LUNG NEOPLASM MALIGNANT
     Dosage: 250 MG DAILY PO
     Route: 048
     Dates: start: 20041101, end: 20050104
  2. DARVOCET [Concomitant]
  3. LOVENOX [Concomitant]

REACTIONS (4)
  - ACNE [None]
  - BLISTER [None]
  - DIARRHOEA [None]
  - LUNG NEOPLASM MALIGNANT [None]
